FAERS Safety Report 8858647 (Version 2)
Quarter: 2012Q4

REPORT INFORMATION
  Report Type: 
  Country: JP (occurrence: JP)
  Receive Date: 20121024
  Receipt Date: 20121107
  Transmission Date: 20130627
  Serious: Yes (Hospitalization, Other)
  Sender: FDA-Public Use
  Company Number: JP-B.I. PHARMACEUTICALS,INC./RIDGEFIELD-2012-BP-25332NB

PATIENT
  Age: 93 Year
  Sex: Male
  Weight: 37 kg

DRUGS (6)
  1. PRAZAXA [Suspect]
     Indication: CEREBROVASCULAR ACCIDENT PROPHYLAXIS
     Dosage: 220 mg
     Route: 048
     Dates: start: 20110715
  2. PRAZAXA [Suspect]
     Dosage: 220 mg
     Route: 048
     Dates: start: 20110826, end: 20120803
  3. PRAZAXA [Suspect]
     Dosage: 110 mg
     Route: 048
     Dates: start: 20120803, end: 20120806
  4. SEROQUEL [Concomitant]
     Indication: DEMENTIA
     Dosage: 25 mg
     Route: 048
     Dates: start: 20110318
  5. BUP-4 [Concomitant]
     Indication: BENIGN PROSTATIC HYPERPLASIA
     Dosage: 10 mg
     Route: 048
     Dates: start: 20111221
  6. MUCOSTA [Concomitant]
     Indication: GASTRITIS
     Dosage: 100 mg
     Route: 048
     Dates: start: 20110715

REACTIONS (5)
  - Haematuria [Not Recovered/Not Resolved]
  - Neoplasm prostate [Not Recovered/Not Resolved]
  - Activated partial thromboplastin time prolonged [Not Recovered/Not Resolved]
  - International normalised ratio increased [Not Recovered/Not Resolved]
  - Benign prostatic hyperplasia [Not Recovered/Not Resolved]
